FAERS Safety Report 5537983-2 (Version None)
Quarter: 2007Q4

REPORT INFORMATION
  Report Type: 
  Country: None (occurrence: None)
  Receive Date: 20071207
  Receipt Date: 20071129
  Transmission Date: 20080405
  Serious: Yes (Hospitalization)
  Sender: FDA-Public Use
  Company Number: GB-ABBOTT-07P-167-0376510-00

PATIENT
  Sex: Male
  Weight: 104 kg

DRUGS (8)
  1. HUMIRA [Suspect]
     Indication: PSORIATIC ARTHROPATHY
     Route: 058
     Dates: start: 20041026, end: 20060413
  2. AURANOFIN [Concomitant]
     Indication: DRUG USE FOR UNKNOWN INDICATION
  3. AMLAS [Concomitant]
     Indication: DRUG USE FOR UNKNOWN INDICATION
  4. ETORICOXIB [Concomitant]
     Indication: DRUG USE FOR UNKNOWN INDICATION
  5. BENDROFLUMETHIAZIDE [Concomitant]
     Indication: DRUG USE FOR UNKNOWN INDICATION
  6. BISOPROLOL FUMARATE [Concomitant]
     Indication: DRUG USE FOR UNKNOWN INDICATION
  7. PROPAFENONE HCL [Concomitant]
     Indication: DRUG USE FOR UNKNOWN INDICATION
  8. LANSOPRAZOLE [Concomitant]
     Indication: DRUG USE FOR UNKNOWN INDICATION

REACTIONS (4)
  - ATRIAL FIBRILLATION [None]
  - ATRIAL FLUTTER [None]
  - LOWER RESPIRATORY TRACT INFECTION [None]
  - RENAL IMPAIRMENT [None]
